FAERS Safety Report 5811166-0 (Version None)
Quarter: 2008Q3

REPORT INFORMATION
  Report Type: 
  Country: None (occurrence: None)
  Receive Date: 20080711
  Receipt Date: 20080319
  Transmission Date: 20090109
  Serious: No
  Sender: FDA-Public Use
  Company Number: 2008BM000060

PATIENT
  Sex: Female
  Weight: 67.7 kg

DRUGS (3)
  1. KUVAN [Suspect]
     Indication: PHENYLKETONURIA
     Dosage: 100 MG;QD;PO
     Route: 048
     Dates: start: 20071203
  2. MIRALAX [Concomitant]
  3. BENTYL [Concomitant]

REACTIONS (10)
  - AGITATION [None]
  - BACK PAIN [None]
  - CONSTIPATION [None]
  - FATIGUE [None]
  - HEADACHE [None]
  - MALAISE [None]
  - MIGRAINE [None]
  - MUSCLE SPASMS [None]
  - NAUSEA [None]
  - PAROSMIA [None]
